FAERS Safety Report 9911627 (Version 2)
Quarter: 2014Q1

REPORT INFORMATION
  Report Type: Report from Study
  Country: US (occurrence: US)
  Receive Date: 20140219
  Receipt Date: 20140320
  Transmission Date: 20141002
  Serious: Yes (Other)
  Sender: FDA-Public Use
  Company Number: PHEH2014US003210

PATIENT
  Age: 50 Year
  Sex: Female

DRUGS (7)
  1. GILENYA [Suspect]
     Dosage: 1 DF, QD
     Route: 048
     Dates: end: 20131107
  2. BACLOFEN [Concomitant]
  3. CLONAZEPAM [Concomitant]
  4. ESTRADIOL [Concomitant]
  5. FEXOFENADINE [Concomitant]
  6. MODAFINIL [Concomitant]
  7. MEDROXYPROGESTERONE [Concomitant]

REACTIONS (3)
  - Hepatic steatosis [Unknown]
  - Gastrointestinal disorder [Unknown]
  - Cholelithiasis [Unknown]
